FAERS Safety Report 8444333-0 (Version None)
Quarter: 2012Q2

REPORT INFORMATION
  Report Type: 
  Country: None (occurrence: None)
  Receive Date: 20120618
  Receipt Date: 20120606
  Transmission Date: 20120825
  Serious: Yes (Hospitalization)
  Sender: FDA-Public Use
  Company Number: CA-ASTRAZENECA-2012SE38556

PATIENT
  Age: 79 Year
  Sex: Female

DRUGS (5)
  1. THEOPHYLLINE [Concomitant]
  2. SPIRIVA [Concomitant]
  3. OTHER [Concomitant]
  4. PREDNISONE TAB [Concomitant]
  5. SYMBICORT [Suspect]
     Indication: ASTHMA
     Route: 055

REACTIONS (3)
  - DYSPNOEA [None]
  - DRUG INEFFECTIVE [None]
  - CHRONIC OBSTRUCTIVE PULMONARY DISEASE [None]
